FAERS Safety Report 21279937 (Version 1)
Quarter: 2022Q3

REPORT INFORMATION
  Report Type: Spontaneous
  Country: US (occurrence: None)
  Receive Date: 20220831
  Receipt Date: 20220831
  Transmission Date: 20221026
  Serious: Yes (Disabling)
  Sender: FDA-Public Use
  Company Number: None

PATIENT
  Age: 46 Year
  Sex: Female
  Weight: 68.85 kg

DRUGS (2)
  1. RISPERDAL CONSTA [Suspect]
     Active Substance: RISPERIDONE
     Indication: Mental disorder
  2. Resperidal consta injection 50 mg [Concomitant]

REACTIONS (8)
  - Somnolence [None]
  - Lethargy [None]
  - Weight increased [None]
  - Vision blurred [None]
  - Drooling [None]
  - Muscle spasms [None]
  - Bone deformity [None]
  - Swelling [None]

NARRATIVE: CASE EVENT DATE: 20220101
